FAERS Safety Report 12919288 (Version 1)
Quarter: 2016Q4

REPORT INFORMATION
  Report Type: Spontaneous
  Country: GB (occurrence: GB)
  Receive Date: 20161108
  Receipt Date: 20161108
  Transmission Date: 20170207
  Serious: Yes (Hospitalization, Other)
  Sender: FDA-Public Use
  Company Number: GB-PFIZER INC-2016509488

PATIENT
  Age: 85 Year
  Sex: Male

DRUGS (14)
  1. CELECOXIB. [Suspect]
     Active Substance: CELECOXIB
     Indication: PAIN
     Dosage: 200 MG, UNK
     Route: 048
  2. CELECOXIB. [Concomitant]
     Active Substance: CELECOXIB
  3. CLOPIDOGREL [Concomitant]
     Active Substance: CLOPIDOGREL BISULFATE
  4. METOPROLOL. [Concomitant]
     Active Substance: METOPROLOL
  5. PREDNISOLONE. [Concomitant]
     Active Substance: PREDNISOLONE
  6. METFORMIN HYDROCHLORIDE. [Suspect]
     Active Substance: METFORMIN HYDROCHLORIDE
     Indication: DIABETES MELLITUS
     Dosage: 1000 MG, 2X/DAY
     Route: 048
  7. TRAMADOL. [Concomitant]
     Active Substance: TRAMADOL
  8. MEZOLAR [Suspect]
     Active Substance: FENTANYL
     Dosage: THREE FENTANYL 25MCG/HOUR TRANSDERMAL PATCHES
     Route: 062
  9. CITALOPRAM [Concomitant]
     Active Substance: CITALOPRAM HYDROBROMIDE
  10. DIGOXIN. [Concomitant]
     Active Substance: DIGOXIN
  11. METFORMIN HYDROCHLORIDE. [Concomitant]
     Active Substance: METFORMIN HYDROCHLORIDE
  12. OMEPRAZOLE. [Concomitant]
     Active Substance: OMEPRAZOLE
  13. TAMSULOSIN [Concomitant]
     Active Substance: TAMSULOSIN
  14. MEZOLAR [Suspect]
     Active Substance: FENTANYL
     Indication: PAIN
     Dosage: ONE 25UG PATCH EVERY 72 HOURS (REGULAR DOSE)
     Route: 062

REACTIONS (6)
  - Malaise [Recovering/Resolving]
  - Accidental overdose [Recovering/Resolving]
  - Unresponsive to stimuli [Recovering/Resolving]
  - Acute kidney injury [Recovering/Resolving]
  - Pyrexia [Recovering/Resolving]
  - Confusional state [Recovering/Resolving]
